FAERS Safety Report 7504005-3 (Version None)
Quarter: 2011Q2

REPORT INFORMATION
  Report Type: 
  Country: None (occurrence: None)
  Receive Date: 20110525
  Receipt Date: 20110517
  Transmission Date: 20111010
  Serious: Yes (Hospitalization)
  Sender: FDA-Public Use
  Company Number: SE-TEVA-282694ISR

PATIENT
  Sex: Male

DRUGS (1)
  1. LOPERAMIDE [Suspect]
     Dosage: 400 MILLIGRAM;
     Route: 048
     Dates: start: 20101001, end: 20110202

REACTIONS (2)
  - VENTRICULAR TACHYARRHYTHMIA [None]
  - INTENTIONAL DRUG MISUSE [None]
